FAERS Safety Report 26132442 (Version 1)
Quarter: 2025Q4

REPORT INFORMATION
  Report Type: Spontaneous
  Country: US (occurrence: US)
  Receive Date: 20251208
  Receipt Date: 20251208
  Transmission Date: 20260118
  Serious: No
  Sender: GALPHARM INTERNATIONAL
  Company Number: US-PERRIGO-25US001696

PATIENT
  Age: 42 Year
  Sex: Female
  Weight: 57.596 kg

DRUGS (2)
  1. CIMETIDINE [Suspect]
     Active Substance: CIMETIDINE
     Indication: Influenza
     Dosage: 200 MG, SINGLE
     Route: 048
     Dates: start: 20250130, end: 20250130
  2. CIMETIDINE [Suspect]
     Active Substance: CIMETIDINE
     Dosage: 600 MG TO 800 MG, QD
     Route: 048
     Dates: start: 20250128, end: 20250129

REACTIONS (8)
  - Anxiety [Not Recovered/Not Resolved]
  - Vertigo [Not Recovered/Not Resolved]
  - Nausea [Not Recovered/Not Resolved]
  - Headache [Not Recovered/Not Resolved]
  - Throat tightness [Not Recovered/Not Resolved]
  - Withdrawal syndrome [Not Recovered/Not Resolved]
  - Drug effective for unapproved indication [Unknown]
  - Incorrect dose administered [Unknown]

NARRATIVE: CASE EVENT DATE: 20250128
